FAERS Safety Report 9648216 (Version 2)
Quarter: 2013Q4

REPORT INFORMATION
  Report Type: Report from Study
  Country: BR (occurrence: BR)
  Receive Date: 20131028
  Receipt Date: 20131127
  Transmission Date: 20140711
  Serious: Yes (Other)
  Sender: FDA-Public Use
  Company Number: PHHY2013BR121008

PATIENT
  Sex: Female

DRUGS (2)
  1. DIOVAN [Suspect]
     Indication: HYPERTENSION
     Dosage: 1 DF, (160MG) DAILY
     Route: 048
  2. DUO-TRAVATAN [Concomitant]
     Indication: GLAUCOMA
     Dosage: UNK (1 APPLICATION) DAILY

REACTIONS (3)
  - Cataract [Recovered/Resolved]
  - Cardiac disorder [Unknown]
  - Blood cholesterol increased [Recovered/Resolved]
